FAERS Safety Report 10689200 (Version 2)
Quarter: 2015Q1

REPORT INFORMATION
  Report Type: Spontaneous
  Country: US (occurrence: US)
  Receive Date: 20150105
  Receipt Date: 20150121
  Transmission Date: 20150720
  Serious: Yes (Other)
  Sender: FDA-Public Use
  Company Number: US-BEH-2014047593

PATIENT
  Sex: Female

DRUGS (1)
  1. BERINERT [Suspect]
     Active Substance: HUMAN C1-ESTERASE INHIBITOR
     Indication: HEREDITARY ANGIOEDEMA
     Dosage: BERINERT STRENGTH 500 UNITS; TO PRESENT
     Route: 042
     Dates: start: 20140211

REACTIONS (4)
  - Swelling face [Unknown]
  - Lip swelling [Unknown]
  - Nasal oedema [Unknown]
  - Abdominal distension [Unknown]
